FAERS Safety Report 5801042-1 (Version None)
Quarter: 2008Q3

REPORT INFORMATION
  Report Type: 
  Country: None (occurrence: None)
  Receive Date: 20080704
  Receipt Date: 20080623
  Transmission Date: 20090109
  Serious: Yes (Other)
  Sender: FDA-Public Use
  Company Number: JP-ELI_LILLY_AND_COMPANY-JP200711003352

PATIENT
  Sex: Female

DRUGS (10)
  1. HUMATROPE [Suspect]
     Indication: GROWTH HORMONE DEFICIENCY
     Dosage: 1.4 MG, WEEKLY (1/W)
     Route: 058
     Dates: start: 20061124
  2. HUMATROPE [Suspect]
     Dosage: 1.8 MG, WEEKLY (1/W)
     Route: 058
     Dates: end: 20070723
  3. HUMATROPE [Suspect]
     Dosage: 2.4 MG, WEEKLY (1/W)
     Route: 058
     Dates: start: 20070724, end: 20071130
  4. CORTRIL [Concomitant]
     Indication: ADRENAL INSUFFICIENCY
     Dosage: 20 MG, DAILY (1/D)
     Route: 048
     Dates: start: 20000314
  5. LEVOTHYROXINE SODIUM [Concomitant]
     Indication: HYPOTHYROIDISM
     Dosage: 100 UG, DAILY (1/D)
     Route: 048
     Dates: start: 20000314
  6. ACINON [Concomitant]
     Dosage: 150 MG, DAILY (1/D)
     Route: 048
     Dates: start: 20000314
  7. ZYLORIC [Concomitant]
     Indication: HYPERURICAEMIA
     Dosage: 100 MG, DAILY (1/D)
     Route: 048
     Dates: start: 20001024
  8. URSO 250 [Concomitant]
     Dosage: 300 MG, DAILY (1/D)
     Route: 048
     Dates: start: 20001226
  9. ARTIST [Concomitant]
     Dosage: 10 MG, DAILY (1/D)
     Route: 048
     Dates: start: 20011001
  10. ASPIRIN [Concomitant]
     Dosage: 100 MG, DAILY (1/D)
     Route: 048
     Dates: start: 20071212

REACTIONS (2)
  - ESSENTIAL THROMBOCYTHAEMIA [None]
  - WHITE BLOOD CELL COUNT INCREASED [None]
